FAERS Safety Report 16976075 (Version 3)
Quarter: 2020Q4

REPORT INFORMATION
  Report Type: Report from Study
  Country: US (occurrence: US)
  Receive Date: 20191030
  Receipt Date: 20201022
  Transmission Date: 20210113
  Serious: Yes (Hospitalization)
  Sender: FDA-Public Use
  Company Number: NVSC2019US006816

PATIENT
  Age: 13 Year
  Sex: Male

DRUGS (14)
  1. VINCRISTINE [Suspect]
     Active Substance: VINCRISTINE
     Indication: ACUTE LYMPHOCYTIC LEUKAEMIA
     Dosage: 2 MG, ONCE
     Route: 042
     Dates: start: 20190920
  2. PREDNISONE. [Suspect]
     Active Substance: PREDNISONE
     Indication: ACUTE LYMPHOCYTIC LEUKAEMIA
     Dosage: 41 MG, BID
     Route: 048
     Dates: start: 20190920, end: 20190924
  3. LIDOCAINE. [Concomitant]
     Active Substance: LIDOCAINE
     Indication: PRODUCT USED FOR UNKNOWN INDICATION
     Route: 065
  4. BACTRIM DS [Concomitant]
     Active Substance: SULFAMETHOXAZOLE\TRIMETHOPRIM
     Indication: ANTIFUNGAL PROPHYLAXIS
     Dosage: 1 DOSAGE FORM, TIW, BID
     Route: 048
     Dates: start: 20190705
  5. PRILOSEC [Concomitant]
     Active Substance: OMEPRAZOLE MAGNESIUM
     Indication: GASTRITIS
     Dosage: 20 MG, QD
     Route: 048
     Dates: start: 20181219
  6. FLONASE [Concomitant]
     Active Substance: FLUTICASONE PROPIONATE
     Indication: RHINOVIRUS INFECTION
     Dosage: 50 UG
     Route: 045
     Dates: start: 20190910
  7. METHOTREXATE. [Suspect]
     Active Substance: METHOTREXATE
     Dosage: 40 MG, WEEKLY
     Route: 048
     Dates: start: 20190920, end: 20191001
  8. NEURONTIN [Concomitant]
     Active Substance: GABAPENTIN
     Indication: PERIPHERAL SENSORY NEUROPATHY
     Dosage: 300 MG, BID
     Route: 048
     Dates: start: 20190508
  9. METHOTREXATE. [Suspect]
     Active Substance: METHOTREXATE
     Dosage: 40 MILLIGRAM, WEEKLY
     Route: 048
     Dates: start: 20191024
  10. MERCAPTOPURINE. [Suspect]
     Active Substance: MERCAPTOPURINE
     Indication: ACUTE LYMPHOCYTIC LEUKAEMIA
     Dosage: 150 MG, QD
     Route: 048
     Dates: start: 20190822, end: 20191001
  11. MERCAPTOPURINE. [Suspect]
     Active Substance: MERCAPTOPURINE
     Dosage: 150 MG, QD
     Route: 048
     Dates: start: 20191024
  12. INC424A [Suspect]
     Active Substance: RUXOLITINIB
     Indication: ACUTE LYMPHOCYTIC LEUKAEMIA
     Dosage: 100 MG, BID
     Route: 048
     Dates: start: 20190920
  13. NEURONTIN [Concomitant]
     Active Substance: GABAPENTIN
     Indication: PERIPHERAL MOTOR NEUROPATHY
  14. METHOTREXATE. [Suspect]
     Active Substance: METHOTREXATE
     Indication: ACUTE LYMPHOCYTIC LEUKAEMIA
     Dosage: 15 MG, ONCE
     Route: 037
     Dates: start: 20190920, end: 20190920

REACTIONS (1)
  - Febrile neutropenia [Recovered/Resolved]

NARRATIVE: CASE EVENT DATE: 20191004
